FAERS Safety Report 5531067-5 (Version None)
Quarter: 2007Q4

REPORT INFORMATION
  Report Type: 
  Country: None (occurrence: None)
  Receive Date: 20071130
  Receipt Date: 20071122
  Transmission Date: 20080405
  Serious: Yes (Other)
  Sender: FDA-Public Use
  Company Number: KR-BOEHRINGER INGELHEIM PHARMACEUTICALS, INC.-2007-DE-06928GD

PATIENT

DRUGS (6)
  1. CATAPRES [Suspect]
     Indication: HYPERTENSION
     Dosage: 3 MCG/KG IN 10 ML SALINE
     Route: 008
  2. NALBUPHINE [Concomitant]
     Indication: PREMEDICATION
     Dosage: 0.2 MG/KG
     Route: 030
  3. ATROPINE [Concomitant]
     Indication: PREMEDICATION
     Dosage: 0.1 MG/KG
     Route: 030
  4. VECURONIUM BROMIDE [Concomitant]
     Indication: INDUCTION OF ANAESTHESIA
     Dosage: PRIMING DOSE OF 0.01 MG/KG, FOLLOWED BY 0.1 MG/KG
  5. THIOPENTAL SODIUM [Concomitant]
     Indication: INDUCTION OF ANAESTHESIA
     Dosage: 5 MG/KG
  6. SEVOFLURANE [Concomitant]
     Indication: MAINTENANCE OF ANAESTHESIA
     Dosage: 2.5 %
     Route: 055

REACTIONS (1)
  - HYPOTENSION [None]
